FAERS Safety Report 10606861 (Version 1)
Quarter: 2014Q4

REPORT INFORMATION
  Report Type: Spontaneous
  Country: IT (occurrence: IT)
  Receive Date: 20141125
  Receipt Date: 20141125
  Transmission Date: 20150529
  Serious: Yes (Hospitalization)
  Sender: FDA-Public Use
  Company Number: IT-SA-2014SA157866

PATIENT
  Age: 86 Year
  Sex: Male

DRUGS (4)
  1. FUROSEMIDE. [Suspect]
     Active Substance: FUROSEMIDE
     Indication: HYPERTENSION
     Route: 048
     Dates: start: 20141027, end: 20141027
  2. FELODIPINE. [Concomitant]
     Active Substance: FELODIPINE
     Route: 048
  3. MICARDIS PLUS [Concomitant]
     Active Substance: HYDROCHLOROTHIAZIDE\TELMISARTAN
     Dosage: STRENGTH: 80/12.5
     Route: 048
  4. TICLOPIDINE [Concomitant]
     Active Substance: TICLOPIDINE
     Route: 048

REACTIONS (6)
  - Gait disturbance [Unknown]
  - Hypokalaemia [Unknown]
  - Asthenia [Unknown]
  - Metabolic alkalosis [Unknown]
  - Drug abuse [Unknown]
  - Hyponatraemic syndrome [Unknown]

NARRATIVE: CASE EVENT DATE: 20141027
